FAERS Safety Report 7955798-2 (Version None)
Quarter: 2011Q4

REPORT INFORMATION
  Report Type: 
  Country: None (occurrence: None)
  Receive Date: 20111205
  Receipt Date: 20111121
  Transmission Date: 20120403
  Serious: Yes (Death, Hospitalization)
  Sender: FDA-Public Use
  Company Number: US-BIOGENIDEC-2011BI039347

PATIENT
  Age: 71 Year
  Sex: Female

DRUGS (9)
  1. OXYBUTYNIN [Concomitant]
  2. TYSABRI [Suspect]
     Indication: MULTIPLE SCLEROSIS
     Route: 042
     Dates: start: 20100811, end: 20110804
  3. HUMALOG [Concomitant]
  4. LISINOPRIL [Concomitant]
  5. DONEPEZIL HCL [Concomitant]
  6. SIMVASTATIN [Concomitant]
  7. MELOXICAM [Concomitant]
  8. HYDROCODONE [Concomitant]
  9. VITAMIN TAB [Concomitant]

REACTIONS (3)
  - KLEBSIELLA INFECTION [None]
  - SEPSIS [None]
  - ENTEROCOCCAL INFECTION [None]
